FAERS Safety Report 21491035 (Version 1)
Quarter: 2022Q4

REPORT INFORMATION
  Report Type: Spontaneous
  Country: US (occurrence: US)
  Receive Date: 20221021
  Receipt Date: 20221021
  Transmission Date: 20230113
  Serious: No
  Sender: FDA-Public Use
  Company Number: US-CELLTRION INC.-2022US011019

PATIENT

DRUGS (14)
  1. INFLECTRA [Suspect]
     Active Substance: INFLIXIMAB-DYYB
     Indication: Product used for unknown indication
     Dosage: DIRECTIONS: INJECT 5 MG OF INFLECTRA FREQUENCY: EVERY 8 WEEKS QUANTITY: 7 REFILLS: (BLANK)
  2. INFLECTRA [Suspect]
     Active Substance: INFLIXIMAB-DYYB
     Dosage: DIRECTIONS: INFUSE 500 MG EVERY 8 WEEKS QUANTITY: 7 REFILLS: 7
     Route: 065
  3. INFLECTRA [Suspect]
     Active Substance: INFLIXIMAB-DYYB
     Dosage: DIRECTIONS: INJECT 5 MG/KG INFUSED EVERY 8 WEEKS QUANTITY:1 VIAL REFILLS:6
     Route: 065
  4. INFLECTRA [Suspect]
     Active Substance: INFLIXIMAB-DYYB
     Dosage: 5 MG/ML, EVERY 8 WEEKS
     Route: 065
  5. HYDROCORTISONE [Concomitant]
     Active Substance: HYDROCORTISONE
  6. LORAZEPAM AHN [Concomitant]
  7. SITAGLIPTIN [Concomitant]
     Active Substance: SITAGLIPTIN
  8. CLOPIDOGREL [Concomitant]
     Active Substance: CLOPIDOGREL BISULFATE
  9. OMEPRAZOLE [Concomitant]
     Active Substance: OMEPRAZOLE
  10. FUROSEMIDE [Concomitant]
     Active Substance: FUROSEMIDE
  11. PRAVASTATIN [Concomitant]
     Active Substance: PRAVASTATIN
  12. LOSARTAN [Concomitant]
     Active Substance: LOSARTAN
  13. AMOXICILLIN [Concomitant]
     Active Substance: AMOXICILLIN
  14. HYDROXYZINE [Concomitant]
     Active Substance: HYDROXYZINE HYDROCHLORIDE

REACTIONS (1)
  - Unevaluable event [Unknown]
